FAERS Safety Report 7731352-2 (Version None)
Quarter: 2011Q3

REPORT INFORMATION
  Report Type: 
  Country: None (occurrence: None)
  Receive Date: 20110906
  Receipt Date: 20110826
  Transmission Date: 20111222
  Serious: Yes (Hospitalization)
  Sender: FDA-Public Use
  Company Number: US-ASTRAZENECA-2011SE51693

PATIENT
  Age: 32 Year
  Sex: Female
  Weight: 77.1 kg

DRUGS (7)
  1. SEROQUEL [Suspect]
     Indication: POST-TRAUMATIC STRESS DISORDER
     Route: 048
  2. EFFEXOR XR [Concomitant]
     Indication: POST-TRAUMATIC STRESS DISORDER
     Route: 048
  3. SIRIDOL [Concomitant]
     Indication: POST-TRAUMATIC STRESS DISORDER
     Route: 048
  4. SIRIDOL [Concomitant]
     Indication: SCHIZOPHRENIA
     Route: 048
  5. DEPOCODE [Concomitant]
     Indication: CONVULSION
     Dosage: 500 MG Q3D
     Route: 048
  6. EFFEXOR XR [Concomitant]
     Indication: SCHIZOPHRENIA
     Route: 048
  7. SEROQUEL [Suspect]
     Indication: SCHIZOPHRENIA
     Route: 048

REACTIONS (1)
  - GUN SHOT WOUND [None]
